FAERS Safety Report 17317204 (Version 1)
Quarter: 2020Q1

REPORT INFORMATION
  Report Type: Spontaneous
  Country: US (occurrence: US)
  Receive Date: 20200124
  Receipt Date: 20200124
  Transmission Date: 20200409
  Serious: Yes (Death)
  Sender: FDA-Public Use
  Company Number: US-ASTRAZENECA-2020SE10952

PATIENT
  Age: 54 Year
  Sex: Male

DRUGS (12)
  1. HYDROXYZINE [Suspect]
     Active Substance: HYDROXYZINE HYDROCHLORIDE
     Route: 048
  2. ATORVASTATIN [Suspect]
     Active Substance: ATORVASTATIN
     Route: 048
  3. QUETIAPINE. [Suspect]
     Active Substance: QUETIAPINE
     Route: 048
  4. LEVOTHYROXINE. [Suspect]
     Active Substance: LEVOTHYROXINE
     Route: 048
  5. PAROXETINE. [Suspect]
     Active Substance: PAROXETINE
     Route: 048
  6. NORTRIPTYLINE [Suspect]
     Active Substance: NORTRIPTYLINE
     Route: 048
  7. VILAZODONE [Suspect]
     Active Substance: VILAZODONE
     Route: 048
  8. LORAZEPAM. [Suspect]
     Active Substance: LORAZEPAM
     Route: 048
  9. FINASTERIDE. [Suspect]
     Active Substance: FINASTERIDE
     Route: 048
  10. LISINOPRIL. [Suspect]
     Active Substance: LISINOPRIL
     Route: 048
  11. GLIMIPIRIDE [Suspect]
     Active Substance: GLIMEPIRIDE
     Route: 048
  12. TAMSULOSIN [Suspect]
     Active Substance: TAMSULOSIN
     Route: 048

REACTIONS (2)
  - Toxicity to various agents [Fatal]
  - Completed suicide [Fatal]
